FAERS Safety Report 6674762-7 (Version None)
Quarter: 2010Q1

REPORT INFORMATION
  Report Type: 
  Country: None (occurrence: None)
  Receive Date: 20100331
  Receipt Date: 20090408
  Transmission Date: 20100710
  Serious: Yes (Other)
  Sender: FDA-Public Use
  Company Number: 2009172744

PATIENT
  Age: 49 Year
  Sex: Male
  Weight: 105.2 kg

DRUGS (1)
  1. CADUET [Suspect]
     Indication: HYPERTENSION
     Dosage: 5/20 MG, 1X/DAY
     Dates: start: 20090201, end: 20090215

REACTIONS (5)
  - DECREASED APPETITE [None]
  - FATIGUE [None]
  - MYALGIA [None]
  - NAUSEA [None]
  - WEIGHT DECREASED [None]
